FAERS Safety Report 8272022-4 (Version None)
Quarter: 2012Q2

REPORT INFORMATION
  Report Type: 
  Country: None (occurrence: None)
  Receive Date: 20120410
  Receipt Date: 20120328
  Transmission Date: 20120825
  Serious: Yes (Hospitalization)
  Sender: FDA-Public Use
  Company Number: FR-JNJFOC-20120404100

PATIENT
  Age: 54 Year
  Sex: Female

DRUGS (9)
  1. REMICADE [Suspect]
     Indication: ANKYLOSING SPONDYLITIS
     Dosage: 400 MG, FOR A TOTAL OF 7 CYCLES
     Route: 042
     Dates: start: 20100201, end: 20101001
  2. ESOMEPRAZOLE MAGNESIUM [Concomitant]
  3. METHOTREXATE [Suspect]
     Indication: PRODUCT USED FOR UNKNOWN INDICATION
     Route: 048
     Dates: start: 20090301
  4. SPAGLUMIC ACID [Concomitant]
  5. ACETAMINOPHEN [Concomitant]
  6. PREDNISONE TAB [Suspect]
     Indication: PRODUCT USED FOR UNKNOWN INDICATION
     Route: 048
     Dates: start: 20090301
  7. ERGOCALCIFEROL [Concomitant]
  8. NEFOPAM [Concomitant]
     Route: 048
  9. ETANERCEPT [Suspect]
     Indication: PRODUCT USED FOR UNKNOWN INDICATION
     Dates: start: 20091001, end: 20100201

REACTIONS (1)
  - NEUROENDOCRINE CARCINOMA OF THE SKIN [None]
